FAERS Safety Report 6089533-2 (Version None)
Quarter: 2009Q1

REPORT INFORMATION
  Report Type: 
  Country: None (occurrence: None)
  Receive Date: 20090220
  Receipt Date: 20090220
  Transmission Date: 20090719
  Serious: No
  Sender: FDA-Public Use
  Company Number: None

PATIENT
  Sex: Female
  Weight: 70.3075 kg

DRUGS (1)
  1. FUROSEMIDE GENERIC [Suspect]
     Indication: CARDIAC FAILURE CONGESTIVE

REACTIONS (1)
  - THERAPEUTIC RESPONSE DECREASED [None]
